FAERS Safety Report 13572443 (Version 5)
Quarter: 2018Q4

REPORT INFORMATION
  Report Type: Spontaneous
  Country: JP (occurrence: JP)
  Receive Date: 20170523
  Receipt Date: 20181011
  Transmission Date: 20190204
  Serious: Yes (Other)
  Sender: FDA-Public Use
  Company Number: PHJP2017JP012679

PATIENT
  Sex: Female

DRUGS (5)
  1. TARIVID [Concomitant]
     Active Substance: OFLOXACIN
     Indication: ANTIBIOTIC PROPHYLAXIS
     Dosage: UNK, QID
     Route: 047
     Dates: start: 20170209
  2. MYDRIN [Concomitant]
     Indication: MYDRIASIS
     Dosage: UNK, QD
     Route: 065
     Dates: start: 20170210, end: 20170331
  3. NEVANAC [Suspect]
     Active Substance: NEPAFENAC
     Indication: PREOPERATIVE CARE
     Dosage: 1 GTT, QID
     Route: 047
     Dates: start: 20170208, end: 20170208
  4. RINDERON V [Concomitant]
     Active Substance: BETAMETHASONE VALERATE
     Indication: EYE INFLAMMATION
     Dosage: UNK, QID
     Route: 047
     Dates: start: 20170209
  5. NEVANAC [Suspect]
     Active Substance: NEPAFENAC
     Dosage: 1 GTT, TID
     Route: 047
     Dates: start: 20170209, end: 20170331

REACTIONS (3)
  - Ulcerative keratitis [Recovered/Resolved]
  - Ocular hyperaemia [Unknown]
  - Foreign body sensation in eyes [Unknown]

NARRATIVE: CASE EVENT DATE: 20170209
